FAERS Safety Report 7508422-7 (Version None)
Quarter: 2011Q2

REPORT INFORMATION
  Report Type: 
  Country: None (occurrence: None)
  Receive Date: 20110527
  Receipt Date: 20110524
  Transmission Date: 20111010
  Serious: No
  Sender: FDA-Public Use
  Company Number: US-PFIZER INC-2011097334

PATIENT
  Sex: Male
  Weight: 86 kg

DRUGS (2)
  1. NEURONTIN [Concomitant]
     Dosage: UNK
  2. CHANTIX [Suspect]
     Indication: SMOKING CESSATION THERAPY
     Dosage: UNK
     Route: 048
     Dates: start: 20110401, end: 20110501

REACTIONS (2)
  - MALAISE [None]
  - PAIN [None]
